FAERS Safety Report 7420403-0 (Version None)
Quarter: 2011Q2

REPORT INFORMATION
  Report Type: 
  Country: None (occurrence: None)
  Receive Date: 20110418
  Receipt Date: 20110413
  Transmission Date: 20111010
  Serious: Yes (Other)
  Sender: FDA-Public Use
  Company Number: US-PFIZER INC-2011060714

PATIENT
  Age: 32 Year
  Sex: Male

DRUGS (2)
  1. DEPAKOTE [Suspect]
     Indication: SCHIZOAFFECTIVE DISORDER
     Dosage: 500 MG, 2X/DAY
     Route: 048
     Dates: start: 20080201
  2. GEODON [Suspect]
     Indication: SCHIZOAFFECTIVE DISORDER
     Dosage: 80 MG, 2X/DAY
     Route: 048
     Dates: start: 20100701

REACTIONS (1)
  - URINARY INCONTINENCE [None]
